FAERS Safety Report 4413081-6 (Version None)
Quarter: 2004Q3

REPORT INFORMATION
  Report Type: 
  Country: None (occurrence: None)
  Receive Date: 20040802
  Receipt Date: 20040802
  Transmission Date: 20050211
  Serious: No
  Sender: FDA-Public Use
  Company Number: None

PATIENT
  Sex: Female
  Weight: 81.6475 kg

DRUGS (2)
  1. ZOLOFT [Suspect]
     Indication: ANXIETY
     Dosage: 50 MG NIGHTLY AURICULAR (O
     Route: 001
     Dates: start: 20010301, end: 20040801
  2. ZOLOFT [Suspect]
     Indication: DEPRESSION
     Dosage: 50 MG NIGHTLY AURICULAR (O
     Route: 001
     Dates: start: 20010301, end: 20040801

REACTIONS (9)
  - ANORGASMIA [None]
  - INCREASED APPETITE [None]
  - INSOMNIA [None]
  - LETHARGY [None]
  - LIBIDO DECREASED [None]
  - NIGHT SWEATS [None]
  - PERSONALITY CHANGE [None]
  - SEXUAL DYSFUNCTION [None]
  - WEIGHT INCREASED [None]
